FAERS Safety Report 12143186 (Version 1)
Quarter: 2016Q1

REPORT INFORMATION
  Report Type: Report from Study
  Country: GB (occurrence: GB)
  Receive Date: 20160304
  Receipt Date: 20160304
  Transmission Date: 20160526
  Serious: Yes (Death)
  Sender: FDA-Public Use
  Company Number: PHFR2016GB002085

PATIENT
  Sex: Female

DRUGS (1)
  1. TOBI PODHALER [Suspect]
     Active Substance: TOBRAMYCIN
     Indication: CYSTIC FIBROSIS
     Dosage: 1 DF (INHALE ONE NEBULE), BID (NOT LESS THAN 6 HOURS BETWEEN DOSES ON ALTERNATE MONTHS)
     Route: 055
     Dates: start: 20150921

REACTIONS (1)
  - Death [Fatal]
